FAERS Safety Report 15439921 (Version 1)
Quarter: 2018Q3

REPORT INFORMATION
  Report Type: Spontaneous
  Country: US (occurrence: US)
  Receive Date: 20180925
  Receipt Date: 20180925
  Transmission Date: 20181010
  Serious: Yes (Other)
  Sender: FDA-Public Use
  Company Number: None

PATIENT
  Age: 82 Year
  Sex: Female
  Weight: 73.6 kg

DRUGS (2)
  1. RITUXAN [Suspect]
     Active Substance: RITUXIMAB
     Indication: RHEUMATOID ARTHRITIS
     Dosage: ?          OTHER FREQUENCY:IV INFUSION;?
     Route: 041
     Dates: start: 20180921, end: 20180921
  2. DIPHENHYDRAMINE 25MG IVP [Concomitant]
     Dates: start: 20180921, end: 20180921

REACTIONS (2)
  - Pharyngeal paraesthesia [None]
  - Throat irritation [None]

NARRATIVE: CASE EVENT DATE: 20180921
